FAERS Safety Report 23942421 (Version 1)
Quarter: 2024Q2

REPORT INFORMATION
  Report Type: Spontaneous
  Country: US (occurrence: None)
  Receive Date: 20240604
  Receipt Date: 20240604
  Transmission Date: 20240716
  Serious: Yes (Disabling)
  Sender: FDA-Public Use
  Company Number: None

PATIENT
  Age: 45 Year
  Sex: Male
  Weight: 65.32 kg

DRUGS (1)
  1. PROPOFOL [Suspect]
     Active Substance: PROPOFOL

REACTIONS (5)
  - Aphasia [None]
  - Agraphia [None]
  - Dyslexia [None]
  - Cognitive disorder [None]
  - Condition aggravated [None]

NARRATIVE: CASE EVENT DATE: 20211029
